FAERS Safety Report 15463397 (Version 4)
Quarter: 2018Q4

REPORT INFORMATION
  Report Type: Spontaneous
  Country: US (occurrence: US)
  Receive Date: 20181004
  Receipt Date: 20181210
  Transmission Date: 20190204
  Serious: Yes (Hospitalization)
  Sender: FDA-Public Use
  Company Number: US-ROCHE-2193386

PATIENT
  Sex: Female

DRUGS (2)
  1. PULMOZYME [Suspect]
     Active Substance: DORNASE ALFA
     Indication: PRODUCT USED FOR UNKNOWN INDICATION
     Dosage: 1MG/ML REFRIGERATED AMPOULE
     Route: 065
     Dates: start: 20171227
  2. PULMOZYME [Suspect]
     Active Substance: DORNASE ALFA
     Dosage: 1MG/ML REFRIGERATED AMPOULE
     Route: 065
     Dates: start: 201511

REACTIONS (1)
  - Cystic fibrosis [Unknown]
